FAERS Safety Report 10914762 (Version 2)
Quarter: 2015Q2

REPORT INFORMATION
  Report Type: Spontaneous
  Country: US (occurrence: US)
  Receive Date: 20150313
  Receipt Date: 20150513
  Transmission Date: 20150821
  Serious: Yes (Hospitalization, Other)
  Sender: FDA-Public Use
  Company Number: US-ASTRAZENECA-2015SE20055

PATIENT
  Sex: Male
  Weight: 101.2 kg

DRUGS (18)
  1. ASPIRIN. [Concomitant]
     Active Substance: ASPIRIN
     Indication: ANTICOAGULANT THERAPY
  2. LASIX [Concomitant]
     Active Substance: FUROSEMIDE
     Indication: SWELLING
  3. LEVEMIR [Concomitant]
     Active Substance: INSULIN DETEMIR
     Indication: BLOOD GLUCOSE ABNORMAL
  4. NITROQUICK [Concomitant]
     Active Substance: NITROGLYCERIN
     Indication: ANGINA PECTORIS
  5. INTEGRA [Concomitant]
     Indication: BLOOD IRON
  6. VITAMIN C [Concomitant]
     Active Substance: ASCORBIC ACID
     Indication: BLOOD IRON
  7. PLAVIX [Concomitant]
     Active Substance: CLOPIDOGREL BISULFATE
     Indication: CARDIAC DISORDER
  8. VITAMIN B12 [Concomitant]
     Active Substance: CYANOCOBALAMIN
     Indication: PROTEIN TOTAL DECREASED
  9. LIPITOR [Concomitant]
     Active Substance: ATORVASTATIN CALCIUM
     Indication: BLOOD CHOLESTEROL ABNORMAL
  10. VITAMIN D2 [Concomitant]
     Active Substance: ERGOCALCIFEROL
  11. NEURONTIN [Concomitant]
     Active Substance: GABAPENTIN
     Indication: NEUROPATHY PERIPHERAL
  12. ZANTAX [Concomitant]
     Indication: GASTROOESOPHAGEAL REFLUX DISEASE
  13. PANTOPRAZOLE [Concomitant]
     Active Substance: PANTOPRAZOLE SODIUM
     Indication: GASTROOESOPHAGEAL REFLUX DISEASE
  14. RANEXA [Concomitant]
     Active Substance: RANOLAZINE
     Indication: ANGINA PECTORIS
  15. AZOR [Concomitant]
     Active Substance: AMLODIPINE BESYLATE\OLMESARTAN MEDOXOMIL
     Indication: BLOOD PRESSURE ABNORMAL
  16. BYETTA [Suspect]
     Active Substance: EXENATIDE
     Indication: TYPE 2 DIABETES MELLITUS
     Route: 065
  17. NOVOLOG [Concomitant]
     Active Substance: INSULIN ASPART
     Indication: BLOOD GLUCOSE ABNORMAL
  18. COREG [Concomitant]
     Active Substance: CARVEDILOL
     Indication: CARDIAC DISORDER

REACTIONS (2)
  - Blood glucose increased [Recovering/Resolving]
  - Cellulitis [Unknown]
